FAERS Safety Report 6195417-1 (Version None)
Quarter: 2009Q2

REPORT INFORMATION
  Report Type: 
  Country: None (occurrence: None)
  Receive Date: 20090519
  Receipt Date: 20090513
  Transmission Date: 20091009
  Serious: Yes (Hospitalization)
  Sender: FDA-Public Use
  Company Number: GR-ABBOTT-09P-066-0558251-00

PATIENT
  Age: 46 Year
  Sex: Female

DRUGS (7)
  1. HUMIRA [Suspect]
     Indication: PSORIATIC ARTHROPATHY
     Route: 058
     Dates: start: 20080501, end: 20081101
  2. HUMIRA [Suspect]
     Dates: start: 20081101
  3. REMICADE [Concomitant]
     Indication: PSORIATIC ARTHROPATHY
     Dates: start: 20040101, end: 20060101
  4. ENBREL [Concomitant]
     Indication: PSORIATIC ARTHROPATHY
     Dates: start: 20060101, end: 20070101
  5. TARKA [Concomitant]
     Indication: HYPERTENSION
  6. SEROPRAM [Concomitant]
     Indication: DEPRESSION
  7. METHOTREXATE SODIUM [Concomitant]
     Indication: PSORIATIC ARTHROPATHY
     Dates: start: 20030101, end: 20081201

REACTIONS (2)
  - COUGH [None]
  - SMALL CELL LUNG CANCER STAGE UNSPECIFIED [None]
